FAERS Safety Report 9927317 (Version 1)
Quarter: 2014Q1

REPORT INFORMATION
  Report Type: Report from Study
  Country: BR (occurrence: BR)
  Receive Date: 20140226
  Receipt Date: 20140226
  Transmission Date: 20141002
  Serious: Yes (Other)
  Sender: FDA-Public Use
  Company Number: PHHY2014BR022040

PATIENT
  Age: 49 Year
  Sex: Female
  Weight: 65 kg

DRUGS (1)
  1. FORASEQ [Suspect]
     Indication: ASTHMA
     Dosage: 1 DF, BID

REACTIONS (5)
  - Infection [Unknown]
  - Asthma [Unknown]
  - Obstructive airways disorder [Not Recovered/Not Resolved]
  - Vital capacity decreased [Unknown]
  - Forced expiratory volume decreased [Unknown]
